FAERS Safety Report 8150833-3 (Version None)
Quarter: 2012Q1

REPORT INFORMATION
  Report Type: 
  Country: None (occurrence: None)
  Receive Date: 20120220
  Receipt Date: 20120214
  Transmission Date: 20120608
  Serious: No
  Sender: FDA-Public Use
  Company Number: US-PFIZER INC-2011299140

PATIENT
  Sex: Female
  Weight: 52 kg

DRUGS (5)
  1. PREMARIN [Suspect]
     Indication: MENOPAUSE
     Dosage: 0.625 MG, 1X/DAY
     Route: 048
     Dates: start: 20100901
  2. PAXIL [Concomitant]
     Indication: PANIC ATTACK
     Dosage: UNK
  3. PREMARIN [Suspect]
     Dosage: UNK
  4. CHANTIX [Suspect]
     Indication: SMOKING CESSATION THERAPY
     Dosage: 0.5 MG, 1X/DAY
     Route: 048
     Dates: start: 20120101, end: 20120121
  5. XANAX [Suspect]
     Dosage: UNK

REACTIONS (7)
  - MENTAL DISORDER [None]
  - ANGER [None]
  - AGITATION [None]
  - DYSPHONIA [None]
  - HYPERHIDROSIS [None]
  - HOT FLUSH [None]
  - NERVOUSNESS [None]
